FAERS Safety Report 5114109-0 (Version None)
Quarter: 2006Q3

REPORT INFORMATION
  Report Type: 
  Country: None (occurrence: None)
  Receive Date: 20060925
  Receipt Date: 20060919
  Transmission Date: 20061208
  Serious: Yes (Hospitalization)
  Sender: FDA-Public Use
  Company Number: JP-JPN-A200603741

PATIENT
  Age: 84 Year
  Sex: Male
  Weight: 56 kg

DRUGS (7)
  1. VALTREX [Suspect]
     Indication: HERPES ZOSTER
     Dosage: 1000MG THREE TIMES PER DAY
     Route: 048
     Dates: start: 20060914, end: 20060915
  2. ALFAROL [Concomitant]
     Route: 048
  3. EPOGEN [Concomitant]
  4. ASPIRIN [Concomitant]
     Route: 048
  5. AVISHOT [Concomitant]
     Route: 048
  6. GASTER D [Concomitant]
     Route: 048
  7. CALTAN [Concomitant]
     Route: 048

REACTIONS (3)
  - DEPRESSED LEVEL OF CONSCIOUSNESS [None]
  - GAIT DISTURBANCE [None]
  - MUSCLE TWITCHING [None]
